FAERS Safety Report 5972650-2 (Version None)
Quarter: 2008Q4

REPORT INFORMATION
  Report Type: 
  Country: None (occurrence: None)
  Receive Date: 20081125
  Receipt Date: 20081114
  Transmission Date: 20090506
  Serious: Yes (Other)
  Sender: FDA-Public Use
  Company Number: 2008AP002750

PATIENT

DRUGS (2)
  1. GABAPENTIN [Suspect]
     Dosage: 300 MG; PO
     Route: 048
  2. GABAPENTIN [Concomitant]

REACTIONS (7)
  - CHEST PAIN [None]
  - CONVULSION [None]
  - DRUG INEFFECTIVE [None]
  - EYE MOVEMENT DISORDER [None]
  - HEADACHE [None]
  - PAIN [None]
  - THERAPEUTIC RESPONSE UNEXPECTED WITH DRUG SUBSTITUTION [None]
